FAERS Safety Report 12124926 (Version 1)
Quarter: 2016Q1

REPORT INFORMATION
  Report Type: Spontaneous
  Country: FR (occurrence: FR)
  Receive Date: 20160229
  Receipt Date: 20160229
  Transmission Date: 20160526
  Serious: Yes (Other)
  Sender: FDA-Public Use
  Company Number: FR-AMGEN-FRASP2016023326

PATIENT
  Age: 27 Year
  Sex: Female

DRUGS (1)
  1. ENBREL [Suspect]
     Active Substance: ETANERCEPT
     Indication: MIXED CONNECTIVE TISSUE DISEASE
     Dosage: 25 MG, 2X/WEEK
     Route: 065

REACTIONS (3)
  - Condition aggravated [Recovered/Resolved]
  - Product use issue [Unknown]
  - Systemic lupus erythematosus [Recovered/Resolved]
